FAERS Safety Report 26125857 (Version 1)
Quarter: 2025Q4

REPORT INFORMATION
  Report Type: Spontaneous
  Country: US (occurrence: US)
  Receive Date: 20251205
  Receipt Date: 20251205
  Transmission Date: 20260118
  Serious: Yes (Other)
  Sender: MALLINCKRODT
  Company Number: US-MALLINCKRODT-MNK202507580

PATIENT
  Age: 65 Year
  Sex: Male

DRUGS (1)
  1. CORTICOTROPIN [Suspect]
     Active Substance: CORTICOTROPIN
     Indication: Interstitial lung disease
     Route: 058
     Dates: start: 202506

REACTIONS (2)
  - Pulmonary haemorrhage [Unknown]
  - Fungal infection [Unknown]

NARRATIVE: CASE EVENT DATE: 20250101
